FAERS Safety Report 9492232 (Version 1)
Quarter: 2013Q3

REPORT INFORMATION
  Report Type: Spontaneous
  Country: FR (occurrence: FR)
  Receive Date: 20130830
  Receipt Date: 20130830
  Transmission Date: 20140515
  Serious: Yes (Hospitalization)
  Sender: FDA-Public Use
  Company Number: FR-PFIZER INC-2013247621

PATIENT
  Age: 89 Year
  Sex: Female

DRUGS (10)
  1. DALACINE [Suspect]
     Dosage: 600 MG, 3X/DAY
     Route: 048
     Dates: start: 20130723, end: 20130726
  2. AUGMENTIN [Interacting]
     Dosage: 2 G, 3X/DAY (EVERY 8 HOURS)
     Route: 041
     Dates: start: 20130721, end: 20130724
  3. COUMADINE [Interacting]
     Dosage: 2 MG, 1X/DAY
     Route: 048
     Dates: end: 20130723
  4. CLAMOXYL [Interacting]
     Dosage: 2 G, UNK
     Route: 048
     Dates: start: 20130725
  5. BISOCE [Concomitant]
     Dosage: 2.5 MG, 1X/DAY
  6. INEXIUM [Concomitant]
     Dosage: 20 MG, 1X/DAY
  7. LASILIX [Concomitant]
     Dosage: 40 MG, 1X/DAY
  8. MOVICOL [Concomitant]
     Dosage: 1 DF, 1X/DAY
  9. LEVOTHYROX [Concomitant]
     Dosage: 100 UG, 1X/DAY
  10. DIFFU K [Concomitant]
     Dosage: 1200 MG DAILY

REACTIONS (2)
  - International normalised ratio increased [Recovered/Resolved]
  - Drug interaction [Recovered/Resolved]
